FAERS Safety Report 6256176-7 (Version None)
Quarter: 2009Q3

REPORT INFORMATION
  Report Type: 
  Country: None (occurrence: None)
  Receive Date: 20090706
  Receipt Date: 20090528
  Transmission Date: 20100115
  Serious: No
  Sender: FDA-Public Use
  Company Number: US-BAYER-200922032NA

PATIENT
  Age: 48 Year
  Sex: Male

DRUGS (3)
  1. LEVITRA [Suspect]
     Indication: ERECTILE DYSFUNCTION
     Dosage: UNIT DOSE: 10 MG
  2. LEVITRA [Suspect]
     Dosage: UNIT DOSE: 10 MG
  3. VITAMINS [Concomitant]

REACTIONS (5)
  - ANORGASMIA [None]
  - BLOOD PRESSURE INCREASED [None]
  - GENITAL HYPOAESTHESIA [None]
  - ORGASM ABNORMAL [None]
  - SKIN WARM [None]
